FAERS Safety Report 14075868 (Version 1)
Quarter: 2017Q4

REPORT INFORMATION
  Report Type: Spontaneous
  Country: US (occurrence: US)
  Receive Date: 20171010
  Receipt Date: 20171010
  Transmission Date: 20180321
  Serious: No
  Sender: FDA-Public Use
  Company Number: US-MYLANLABS-2017M1008232

PATIENT
  Age: 17 Year
  Sex: Female

DRUGS (1)
  1. EMSAM [Suspect]
     Active Substance: SELEGILINE
     Indication: DEPRESSION
     Dosage: 6MG, QD
     Route: 062
     Dates: start: 201612, end: 20170126

REACTIONS (2)
  - Application site urticaria [Recovered/Resolved]
  - Application site laceration [Recovered/Resolved]

NARRATIVE: CASE EVENT DATE: 201612
